FAERS Safety Report 20347358 (Version 1)
Quarter: 2022Q1

REPORT INFORMATION
  Report Type: Spontaneous
  Country: US (occurrence: None)
  Receive Date: 20220117
  Receipt Date: 20220117
  Transmission Date: 20220424
  Serious: Yes (Other)
  Sender: FDA-Public Use
  Company Number: None

PATIENT
  Age: 31 Year
  Sex: Male

DRUGS (2)
  1. REGEN-COV [Suspect]
     Active Substance: CASIRIVIMAB\IMDEVIMAB
     Indication: COVID-19
     Route: 042
  2. REGEN- Covid (EUA) [Concomitant]
     Dates: start: 20220115

REACTIONS (6)
  - Loss of consciousness [None]
  - Infusion related reaction [None]
  - Vomiting [None]
  - Cold sweat [None]
  - Erythema [None]
  - Heart rate decreased [None]

NARRATIVE: CASE EVENT DATE: 20220115
